FAERS Safety Report 25959182 (Version 3)
Quarter: 2025Q4

REPORT INFORMATION
  Report Type: Spontaneous
  Country: EU (occurrence: EU)
  Receive Date: 20251025
  Receipt Date: 20251112
  Transmission Date: 20260117
  Serious: Yes (Hospitalization, Other)
  Sender: CELLTRION
  Company Number: None

PATIENT

DRUGS (9)
  1. YUFLYMA [Suspect]
     Active Substance: ADALIMUMAB-AATY
     Indication: Rheumatoid arthritis
     Dosage: 40 MILLIGRAM, EVERY 14 DAYS (DF: SOLUTION FOR INJECTION IN PRE-FILLED PEN)
     Route: 058
     Dates: start: 20250917, end: 20250917
  2. YUFLYMA [Suspect]
     Active Substance: ADALIMUMAB-AATY
  3. METHOTREXATE [Concomitant]
     Active Substance: METHOTREXATE
     Indication: Rheumatoid arthritis
     Dosage: UNK
  4. MEDROL [Concomitant]
     Active Substance: METHYLPREDNISOLONE
     Indication: Rheumatoid arthritis
     Dosage: UNK
  5. MONTELUKAST SODIUM [Concomitant]
     Active Substance: MONTELUKAST SODIUM
     Indication: Asthma
     Route: 048
  6. LIVIAL [Concomitant]
     Active Substance: TIBOLONE
     Indication: Osteoporosis prophylaxis
     Route: 048
  7. FOLIC ACID [Concomitant]
     Active Substance: FOLIC ACID
     Indication: Chemotherapy toxicity attenuation
     Dosage: 5 MG
     Route: 048
  8. POTASSIUM CHLORIDE [Concomitant]
     Active Substance: POTASSIUM CHLORIDE
     Indication: Hypokalaemia
     Dosage: 1800 MG
     Route: 048
  9. XYZAL [Concomitant]
     Active Substance: LEVOCETIRIZINE DIHYDROCHLORIDE
     Indication: Rhinitis allergic
     Dosage: 5 MG
     Route: 048

REACTIONS (5)
  - Asthenia [Recovering/Resolving]
  - Rash [Recovered/Resolved]
  - Haematoma [Recovered/Resolved]
  - Malaise [Recovered/Resolved]
  - Mood altered [Recovered/Resolved]

NARRATIVE: CASE EVENT DATE: 20250918
